FAERS Safety Report 13291297 (Version 2)
Quarter: 2017Q1

REPORT INFORMATION
  Report Type: Report from Study
  Country: PK (occurrence: PK)
  Receive Date: 20170303
  Receipt Date: 20170317
  Transmission Date: 20170428
  Serious: Yes (Death)
  Sender: FDA-Public Use
  Company Number: PHHY2017PK032281

PATIENT
  Age: 20 Year
  Sex: Male

DRUGS (2)
  1. ASUNRA [Suspect]
     Active Substance: DEFERASIROX
     Indication: THALASSAEMIA
     Dosage: 400 MG, BID
     Route: 048
     Dates: start: 20151208, end: 20161221
  2. DESFERAL [Suspect]
     Active Substance: DEFEROXAMINE MESYLATE
     Indication: THALASSAEMIA
     Dosage: 5 DF, QD (5 X OD)
     Route: 058
     Dates: start: 19980509, end: 20161221

REACTIONS (2)
  - Renal impairment [Fatal]
  - Urine output decreased [Fatal]

NARRATIVE: CASE EVENT DATE: 20161120
